FAERS Safety Report 11889479 (Version 1)
Quarter: 2016Q1

REPORT INFORMATION
  Report Type: Spontaneous
  Country: US (occurrence: US)
  Receive Date: 20160105
  Receipt Date: 20160105
  Transmission Date: 20160526
  Serious: Yes (Hospitalization)
  Sender: FDA-Public Use
  Company Number: US-PROCTER+GAMBLE-GS15043003

PATIENT
  Age: 74 Year
  Sex: Male

DRUGS (1)
  1. METAMUCIL THERAPY FOR REGULARITY [Suspect]
     Active Substance: PSYLLIUM HUSK
     Indication: DECREASED APPETITE
     Dosage: 2.5 TSP, 2 /DAY
     Route: 048
     Dates: end: 20151205

REACTIONS (4)
  - Vomiting [Recovered/Resolved]
  - Product use issue [Unknown]
  - Intestinal obstruction [Recovered/Resolved]
  - Abdominal pain upper [Recovered/Resolved]

NARRATIVE: CASE EVENT DATE: 201512
